FAERS Safety Report 8045527 (Version 2)
Quarter: 2013Q1

REPORT INFORMATION
  Report Type: Spontaneous
  Country: US (occurrence: US)
  Receive Date: 20110720
  Receipt Date: 20130107
  Transmission Date: 20140127
  Serious: Yes (Death, Hospitalization)
  Sender: FDA-Public Use
  Company Number: US-GLAXOSMITHKLINE-A0901286A

PATIENT
  Age: 78 Year
  Sex: Female

DRUGS (6)
  1. AVANDIA [Suspect]
     Indication: DIABETES MELLITUS
     Dosage: 4MG PER DAY
     Route: 048
     Dates: end: 200702
  2. LOPRESSOR [Concomitant]
  3. VERAPAMIL SR [Concomitant]
  4. ISOSORBIDE DINITRATE [Concomitant]
  5. CLONIDINE [Concomitant]
  6. HYDRALAZINE [Concomitant]

REACTIONS (4)
  - Death [Fatal]
  - Cerebrovascular accident [Unknown]
  - Cardiac failure congestive [Unknown]
  - Myocardial infarction [Unknown]
